FAERS Safety Report 5804320-5 (Version None)
Quarter: 2008Q3

REPORT INFORMATION
  Report Type: 
  Country: None (occurrence: None)
  Receive Date: 20080707
  Receipt Date: 20080707
  Transmission Date: 20090109
  Serious: Yes (Disabling)
  Sender: FDA-Public Use
  Company Number: None

PATIENT
  Age: 61 Year
  Sex: Male
  Weight: 77.1115 kg

DRUGS (1)
  1. PROPARACAINE HYDROCHLORIDE [Suspect]
     Indication: GLAUCOMA
     Dosage: DROP
     Dates: start: 20080617, end: 20080617

REACTIONS (4)
  - EYE SWELLING [None]
  - EYELID OEDEMA [None]
  - EYELIDS PRURITUS [None]
  - SWELLING FACE [None]
